FAERS Safety Report 7412923-X (Version None)
Quarter: 2011Q2

REPORT INFORMATION
  Report Type: 
  Country: None (occurrence: None)
  Receive Date: 20110408
  Receipt Date: 20110408
  Transmission Date: 20111010
  Serious: Yes (Hospitalization)
  Sender: FDA-Public Use
  Company Number: None

PATIENT
  Age: 13 Year
  Sex: Male
  Weight: 99.7913 kg

DRUGS (1)
  1. ABILIFY [Suspect]

REACTIONS (7)
  - MUSCULOSKELETAL STIFFNESS [None]
  - RESTLESSNESS [None]
  - CRYING [None]
  - ARTHRALGIA [None]
  - TREMOR [None]
  - PAIN [None]
  - MYALGIA [None]
